FAERS Safety Report 13296743 (Version 3)
Quarter: 2017Q3

REPORT INFORMATION
  Report Type: Report from Study
  Country: US (occurrence: US)
  Receive Date: 20170306
  Receipt Date: 20170725
  Transmission Date: 20171127
  Serious: Yes (Hospitalization, Other)
  Sender: FDA-Public Use
  Company Number: US-GILEAD-2017-0260677

PATIENT
  Age: 56 Year
  Sex: Male
  Weight: 45 kg

DRUGS (1)
  1. AMBRISENTAN [Suspect]
     Active Substance: AMBRISENTAN
     Indication: PRODUCT USED FOR UNKNOWN INDICATION
     Dosage: 5 MG, QD
     Route: 065
     Dates: start: 20131029

REACTIONS (17)
  - Dizziness [Not Recovered/Not Resolved]
  - Weight decreased [Unknown]
  - Paraesthesia [Unknown]
  - Diabetes mellitus [Not Recovered/Not Resolved]
  - Nausea [Not Recovered/Not Resolved]
  - Abdominal pain [Not Recovered/Not Resolved]
  - Stent placement [Unknown]
  - Malaise [Recovering/Resolving]
  - Myocardial infarction [Unknown]
  - Chest pain [Not Recovered/Not Resolved]
  - Exercise tolerance decreased [Not Recovered/Not Resolved]
  - Fatigue [Not Recovered/Not Resolved]
  - Cerebrovascular accident [Unknown]
  - Pain [Unknown]
  - Colon cancer [Unknown]
  - Gout [Unknown]
  - Headache [Unknown]
